FAERS Safety Report 4518957-7 (Version None)
Quarter: 2004Q4

REPORT INFORMATION
  Report Type: 
  Country: None (occurrence: None)
  Receive Date: 20041201
  Receipt Date: 20041123
  Transmission Date: 20050328
  Serious: Yes (Hospitalization)
  Sender: FDA-Public Use
  Company Number: 2004097550

PATIENT
  Age: 28 Year
  Sex: Male

DRUGS (4)
  1. ZYVOX [Suspect]
     Indication: FISTULA
     Dosage: 1200 MG (600 MG, TWICE DAILY), ORAL
     Route: 048
     Dates: start: 20041116, end: 20041123
  2. PARKEMED (MEFENAMIC ACID) [Suspect]
     Indication: PAIN
     Dosage: ORAL
     Route: 048
     Dates: start: 20041116, end: 20041123
  3. ESOMEPRAZOLE ESOMEPRAZOLE) [Concomitant]
  4. POTASSIUM (POTASSIUM) [Concomitant]

REACTIONS (2)
  - EXANTHEM [None]
  - PYREXIA [None]
